FAERS Safety Report 9294268 (Version 1)
Quarter: 2013Q2

REPORT INFORMATION
  Report Type: Spontaneous
  Country: US (occurrence: US)
  Receive Date: 20130516
  Receipt Date: 20130516
  Transmission Date: 20140414
  Serious: Yes (Other)
  Sender: FDA-Public Use
  Company Number: US-BANPHARM-20130601

PATIENT
  Sex: Female

DRUGS (1)
  1. IBUPROFEN CAPSULES 200 MG [Suspect]
     Dosage: 4 DF, ONCE,
     Route: 048

REACTIONS (3)
  - Hypersensitivity [Not Recovered/Not Resolved]
  - Eye swelling [Not Recovered/Not Resolved]
  - Incorrect dose administered [Not Recovered/Not Resolved]
